FAERS Safety Report 24026624 (Version 4)
Quarter: 2024Q3

REPORT INFORMATION
  Report Type: Report from Study
  Country: CN (occurrence: CN)
  Receive Date: 20240628
  Receipt Date: 20240710
  Transmission Date: 20241017
  Serious: No
  Sender: ROCHE
  Company Number: CN-ROCHE-3101939

PATIENT
  Age: 64 Year
  Sex: Male
  Weight: 70.0 kg

DRUGS (11)
  1. ALECTINIB [Suspect]
     Active Substance: ALECTINIB
     Indication: Non-small cell lung cancer metastatic
     Route: 048
     Dates: start: 20211022
  2. MOMETASONE FUROATE [Concomitant]
     Active Substance: MOMETASONE FUROATE
     Route: 061
     Dates: start: 20220614, end: 20220714
  3. GANXI [Concomitant]
     Route: 048
     Dates: start: 20220615, end: 202207
  4. LORATADINE [Concomitant]
     Active Substance: LORATADINE
     Route: 048
     Dates: start: 20220614, end: 20220616
  5. BUPLEURUM ROOT [Concomitant]
     Route: 048
     Dates: start: 20221220, end: 20221220
  6. DESLORATADINE [Concomitant]
     Active Substance: DESLORATADINE
     Route: 048
     Dates: start: 20220825, end: 20220831
  7. PETROLEUM JELLY [Concomitant]
     Active Substance: PETROLATUM
     Route: 065
     Dates: start: 202304
  8. CELECOXIB [Concomitant]
     Active Substance: CELECOXIB
     Route: 048
     Dates: start: 20231111, end: 20231121
  9. SINOFIN CAPSULES (UNK INGREDIENTS) [Concomitant]
  10. LORATADINE [Concomitant]
     Active Substance: LORATADINE
  11. DESLORATADINE [Concomitant]
     Active Substance: DESLORATADINE

REACTIONS (2)
  - Pruritus [Not Recovered/Not Resolved]
  - Skin discolouration [Not Recovered/Not Resolved]

NARRATIVE: CASE EVENT DATE: 20220403
